FAERS Safety Report 5826467-X (Version None)
Quarter: 2008Q3

REPORT INFORMATION
  Report Type: 
  Country: None (occurrence: None)
  Receive Date: 20080729
  Receipt Date: 20080725
  Transmission Date: 20090109
  Serious: Yes (Death, Hospitalization)
  Sender: FDA-Public Use
  Company Number: MX-ABBOTT-08P-107-0455078-00

PATIENT
  Sex: Male

DRUGS (1)
  1. KALETRA [Suspect]
     Indication: HIV INFECTION
     Dosage: TWO 200/50 MG TABLETS TWICE DAILY
     Route: 048
     Dates: start: 20060323

REACTIONS (4)
  - ACQUIRED IMMUNODEFICIENCY SYNDROME [None]
  - DEPRESSION [None]
  - HIV WASTING SYNDROME [None]
  - LYMPHOMA [None]
